FAERS Safety Report 5298878-5 (Version None)
Quarter: 2007Q2

REPORT INFORMATION
  Report Type: 
  Country: None (occurrence: None)
  Receive Date: 20070410
  Receipt Date: 20070329
  Transmission Date: 20071010
  Serious: Yes (Other)
  Sender: FDA-Public Use
  Company Number: 2007309791

PATIENT
  Sex: Female

DRUGS (1)
  1. VISINE L.R. [Suspect]
     Dosage: OPHTHALMIC
     Route: 047

REACTIONS (7)
  - BURNING SENSATION [None]
  - CORNEAL ABRASION [None]
  - CORNEAL OEDEMA [None]
  - KERATITIS [None]
  - PAIN [None]
  - STRESS [None]
  - VISION BLURRED [None]
